FAERS Safety Report 13324169 (Version 3)
Quarter: 2017Q2

REPORT INFORMATION
  Report Type: Spontaneous
  Country: US (occurrence: US)
  Receive Date: 20170310
  Receipt Date: 20170414
  Transmission Date: 20170830
  Serious: Yes (Hospitalization, Other)
  Sender: FDA-Public Use
  Company Number: US-SAOL THERAPEUTICS-2017SAO00459

PATIENT
  Sex: Male
  Weight: 76.75 kg

DRUGS (9)
  1. LIORESAL [Suspect]
     Active Substance: BACLOFEN
     Dosage: 840 ?G, \DAY
     Route: 037
  2. AMANTADINE. [Concomitant]
     Active Substance: AMANTADINE HYDROCHLORIDE
  3. FERROUS SULFATE. [Concomitant]
     Active Substance: FERROUS SULFATE
  4. LIORESAL [Suspect]
     Active Substance: BACLOFEN
     Dosage: 701.3 ?G, \DAY
     Route: 037
     Dates: start: 20170118
  5. LIORESAL [Suspect]
     Active Substance: BACLOFEN
     Dosage: 934.3 ?G, \DAY
     Route: 037
     Dates: start: 20170103
  6. TIZANIDINE. [Concomitant]
     Active Substance: TIZANIDINE
  7. REMERON [Concomitant]
     Active Substance: MIRTAZAPINE
  8. MIDODRINE [Concomitant]
     Active Substance: MIDODRINE
  9. LIORESAL [Suspect]
     Active Substance: BACLOFEN
     Indication: MUSCLE SPASTICITY
     Dosage: UNK
     Route: 037
     Dates: start: 20160622

REACTIONS (4)
  - Sedation [Recovered/Resolved]
  - Mental status changes [Recovered/Resolved]
  - Urinary tract infection [Unknown]
  - Multiple sclerosis relapse [Unknown]
